FAERS Safety Report 5886312-3 (Version None)
Quarter: 2008Q3

REPORT INFORMATION
  Report Type: 
  Country: None (occurrence: None)
  Receive Date: 20080917
  Receipt Date: 20080911
  Transmission Date: 20090109
  Serious: Yes (Other)
  Sender: FDA-Public Use
  Company Number: A0747082A

PATIENT
  Age: 44 Year
  Sex: Female

DRUGS (6)
  1. TREXIMET [Suspect]
     Indication: MIGRAINE
     Dosage: 1TAB AS REQUIRED
     Route: 048
  2. CREON [Concomitant]
  3. OSCAL [Concomitant]
  4. MULTI-VITAMIN [Concomitant]
  5. FLAX SEED [Concomitant]
  6. IRON [Concomitant]

REACTIONS (5)
  - FLUSHING [None]
  - HEMIPARESIS [None]
  - HOT FLUSH [None]
  - MALAISE [None]
  - TREMOR [None]
